FAERS Safety Report 10482771 (Version 2)
Quarter: 2014Q4

REPORT INFORMATION
  Report Type: Spontaneous
  Country: FR (occurrence: FR)
  Receive Date: 20140929
  Receipt Date: 20141007
  Transmission Date: 20150528
  Serious: Yes (Hospitalization)
  Sender: FDA-Public Use
  Company Number: FR-ROCHE-1467788

PATIENT
  Sex: Male
  Weight: 65 kg

DRUGS (5)
  1. AVASTIN [Suspect]
     Active Substance: BEVACIZUMAB
     Indication: RECTAL ADENOCARCINOMA
     Route: 042
     Dates: start: 20120813
  2. CAMPTO [Concomitant]
     Active Substance: IRINOTECAN
  3. 5-FLUOROURACIL [Concomitant]
     Active Substance: FLUOROURACIL
  4. FOLINIC ACID [Concomitant]
     Active Substance: LEUCOVORIN
  5. AVASTIN [Suspect]
     Active Substance: BEVACIZUMAB
     Indication: METASTASES TO LIVER
     Route: 042
     Dates: start: 20130304, end: 201408

REACTIONS (2)
  - Peritonitis [Recovered/Resolved]
  - Diverticular perforation [Recovered/Resolved]

NARRATIVE: CASE EVENT DATE: 20130208
